FAERS Safety Report 4847631-2 (Version None)
Quarter: 2005Q4

REPORT INFORMATION
  Report Type: 
  Country: None (occurrence: None)
  Receive Date: 20051205
  Receipt Date: 20051120
  Transmission Date: 20060501
  Serious: Yes (Life-Threatening)
  Sender: FDA-Public Use
  Company Number: 2005158768

PATIENT
  Age: 75 Year
  Sex: Female

DRUGS (5)
  1. DIFLUCAN [Suspect]
     Indication: CANDIDURIA
     Dosage: 200 MG
     Dates: start: 20051109, end: 20051120
  2. NEXIUM [Concomitant]
  3. VANCOMYCIN [Concomitant]
  4. ESIDRIX [Concomitant]
  5. DIGOXIN [Concomitant]

REACTIONS (3)
  - HEPATIC FAILURE [None]
  - METABOLIC ACIDOSIS [None]
  - RESPIRATORY FAILURE [None]
